FAERS Safety Report 6103001-0 (Version None)
Quarter: 2009Q1

REPORT INFORMATION
  Report Type: 
  Country: None (occurrence: None)
  Receive Date: 20090305
  Receipt Date: 20090224
  Transmission Date: 20090719
  Serious: Yes (Other)
  Sender: FDA-Public Use
  Company Number: PHBS2009DE00883

PATIENT
  Age: 79 Year
  Sex: Male

DRUGS (3)
  1. ENTACAPONE-LEVODOPA-CARBIDOPA [Suspect]
     Dosage: 900 MG, UNK
  2. CLOZAPINE [Concomitant]
  3. ROPINIROLE [Concomitant]
     Dosage: 6 MG, UNK

REACTIONS (2)
  - AKINESIA [None]
  - HYPOKINESIA [None]
